FAERS Safety Report 24589477 (Version 1)
Quarter: 2024Q4

REPORT INFORMATION
  Report Type: Report from Study
  Country: US (occurrence: US)
  Receive Date: 20241107
  Receipt Date: 20241107
  Transmission Date: 20250115
  Serious: Yes (Hospitalization, Other)
  Sender: INCYTE
  Company Number: US-EVENT-000326

PATIENT

DRUGS (5)
  1. JAKAFI [Suspect]
     Active Substance: RUXOLITINIB
     Indication: Myelofibrosis
     Dosage: 10 MILLIGRAM, BID
     Route: 065
  2. JAKAFI [Suspect]
     Active Substance: RUXOLITINIB
     Dosage: UNK
     Route: 065
     Dates: end: 20241021
  3. HYDROXYUREA [Concomitant]
     Active Substance: HYDROXYUREA
     Indication: Product used for unknown indication
     Dosage: UNK
     Route: 065
  4. ASPIRIN [Concomitant]
     Active Substance: ASPIRIN
     Indication: Product used for unknown indication
     Dosage: DAILY
     Route: 065
  5. ESTRADIOL [Concomitant]
     Active Substance: ESTRADIOL
     Indication: Product used for unknown indication
     Dosage: THREE TIMES A WEEK
     Route: 065

REACTIONS (10)
  - Chest discomfort [Unknown]
  - Pulmonary pain [Unknown]
  - Atypical pneumonia [Unknown]
  - Full blood count decreased [Unknown]
  - Asthenia [Unknown]
  - Cough [Unknown]
  - White blood cell count increased [Unknown]
  - Visual impairment [Unknown]
  - Red blood cell count decreased [Unknown]
  - Platelet count decreased [Unknown]
